FAERS Safety Report 20068172 (Version 34)
Quarter: 2025Q1

REPORT INFORMATION
  Report Type: Report from Study
  Country: US (occurrence: US)
  Receive Date: 20211115
  Receipt Date: 20250227
  Transmission Date: 20250409
  Serious: Yes (Other)
  Sender: TAKEDA
  Company Number: US-TAKEDA-2021TUS046501

PATIENT
  Age: 54 Year
  Sex: Female
  Weight: 65 kg

DRUGS (32)
  1. HUMAN IMMUNOGLOBULIN G [Suspect]
     Active Substance: HUMAN IMMUNOGLOBULIN G
     Indication: Myasthenia gravis
  2. HUMAN IMMUNOGLOBULIN G [Suspect]
     Active Substance: HUMAN IMMUNOGLOBULIN G
     Indication: Sjogren^s syndrome
     Dosage: 66 GRAM, Q8WEEKS
  3. HUMAN IMMUNOGLOBULIN G [Suspect]
     Active Substance: HUMAN IMMUNOGLOBULIN G
     Dosage: UNK UNK, Q5WEEKS
  4. HUMAN IMMUNOGLOBULIN G [Suspect]
     Active Substance: HUMAN IMMUNOGLOBULIN G
     Dosage: UNK UNK, Q4WEEKS
  5. HUMAN IMMUNOGLOBULIN G [Suspect]
     Active Substance: HUMAN IMMUNOGLOBULIN G
  6. HUMAN IMMUNOGLOBULIN G [Suspect]
     Active Substance: HUMAN IMMUNOGLOBULIN G
     Dosage: 90 GRAM, Q6WEEKS
  7. HUMAN IMMUNOGLOBULIN G [Suspect]
     Active Substance: HUMAN IMMUNOGLOBULIN G
  8. HUMAN IMMUNOGLOBULIN G [Suspect]
     Active Substance: HUMAN IMMUNOGLOBULIN G
  9. BENADRYL [Suspect]
     Active Substance: DIPHENHYDRAMINE HYDROCHLORIDE
     Indication: Product used for unknown indication
  10. IBUPROFEN [Suspect]
     Active Substance: IBUPROFEN
     Indication: Product used for unknown indication
  11. DIPHENHYDRAMINE HYDROCHLORIDE [Concomitant]
     Active Substance: DIPHENHYDRAMINE HYDROCHLORIDE
  12. SODIUM CHLORIDE [Concomitant]
     Active Substance: SODIUM CHLORIDE
  13. ACETAMINOPHEN [Concomitant]
     Active Substance: ACETAMINOPHEN
  14. ESTRADIOL [Concomitant]
     Active Substance: ESTRADIOL
  15. SODIUM CHLORIDE [Concomitant]
     Active Substance: SODIUM CHLORIDE
  16. EPINEPHRINE [Concomitant]
     Active Substance: EPINEPHRINE
  17. BIOTIN [Concomitant]
     Active Substance: BIOTIN
  18. PILOCARPINE HYDROCHLORIDE [Concomitant]
     Active Substance: PILOCARPINE HYDROCHLORIDE
  19. LIDOCAINE [Concomitant]
     Active Substance: LIDOCAINE
  20. EPIPEN [Concomitant]
     Active Substance: EPINEPHRINE
  21. HEPARIN [Concomitant]
     Active Substance: HEPARIN SODIUM
  22. Omega [Concomitant]
  23. BANOPHEN [Concomitant]
     Active Substance: DIPHENHYDRAMINE HYDROCHLORIDE
  24. VITAMIN D [Concomitant]
     Active Substance: VITAMIN D NOS
  25. ADVIL [Concomitant]
     Active Substance: IBUPROFEN
  26. HYDROCORTISONE [Concomitant]
     Active Substance: HYDROCORTISONE
  27. WATER FOR INJECTION [Concomitant]
     Active Substance: WATER
  28. FAMOTIDINE [Concomitant]
     Active Substance: FAMOTIDINE
  29. DIPHENHYDRAMINE [Concomitant]
     Active Substance: DIPHENHYDRAMINE
  30. RIBOFLAVIN [Concomitant]
     Active Substance: RIBOFLAVIN
  31. EVOXAC [Concomitant]
     Active Substance: CEVIMELINE HYDROCHLORIDE
  32. PRILOSEC OTC [Concomitant]
     Active Substance: OMEPRAZOLE MAGNESIUM

REACTIONS (27)
  - Paralysis [Unknown]
  - Nephrolithiasis [Unknown]
  - Ligament rupture [Not Recovered/Not Resolved]
  - Infusion site discharge [Unknown]
  - Peripheral swelling [Unknown]
  - COVID-19 [Recovering/Resolving]
  - Dermatitis contact [Unknown]
  - Infusion related reaction [Unknown]
  - Discomfort [Unknown]
  - Product use in unapproved indication [Unknown]
  - Gastritis [Unknown]
  - Ageusia [Unknown]
  - Anosmia [Unknown]
  - Inappropriate schedule of product administration [Unknown]
  - Heart rate increased [Unknown]
  - Contusion [Unknown]
  - Infusion site discomfort [Recovered/Resolved]
  - Muscular weakness [Unknown]
  - Asthenia [Unknown]
  - Rash [Unknown]
  - Abdominal pain upper [Unknown]
  - Blood pressure increased [Unknown]
  - Infusion site erythema [Recovered/Resolved]
  - Arthralgia [Unknown]
  - Hypertension [Unknown]
  - Headache [Recovered/Resolved]
  - Fatigue [Unknown]

NARRATIVE: CASE EVENT DATE: 20210705
